FAERS Safety Report 23094658 (Version 1)
Quarter: 2023Q4

REPORT INFORMATION
  Report Type: Other
  Country: GR (occurrence: None)
  Receive Date: 20231023
  Receipt Date: 20231023
  Transmission Date: 20240110
  Serious: Yes (Hospitalization)
  Sender: FDA-Public Use
  Company Number: GR-ROCHE-3442087

PATIENT

DRUGS (2)
  1. RITUXIMAB [Suspect]
     Active Substance: RITUXIMAB
     Indication: Myasthenia gravis
     Dosage: INDUCTION CYCLE
     Route: 041
  2. RITUXIMAB [Suspect]
     Active Substance: RITUXIMAB
     Dosage: AFTER 6-8 MONTHS
     Route: 041

REACTIONS (14)
  - COVID-19 [Unknown]
  - Infusion related reaction [Unknown]
  - Laryngeal oedema [Unknown]
  - Tachycardia [Unknown]
  - Hypertension [Unknown]
  - Blood disorder [Unknown]
  - Anaemia [Unknown]
  - Lymphopenia [Unknown]
  - Infection [Unknown]
  - Respiratory tract infection [Unknown]
  - Urinary tract infection [Unknown]
  - Abscess [Unknown]
  - Herpes zoster [Unknown]
  - Fungal infection [Unknown]
